FAERS Safety Report 5250088-3 (Version None)
Quarter: 2007Q1

REPORT INFORMATION
  Report Type: 
  Country: None (occurrence: None)
  Receive Date: 20070228
  Receipt Date: 20060202
  Transmission Date: 20070707
  Serious: No
  Sender: FDA-Public Use
  Company Number: US-GLAXOSMITHKLINE-A0592137A

PATIENT
  Age: 54 Year
  Sex: Female

DRUGS (6)
  1. LAMICTAL [Suspect]
     Indication: BIPOLAR DISORDER
     Dosage: 75MG TWICE PER DAY
     Route: 048
     Dates: start: 20051226
  2. ZOCOR [Concomitant]
  3. AMBIEN [Concomitant]
  4. CELEBREX [Concomitant]
  5. HYDROCODONE [Concomitant]
  6. STEROID INJECTION [Concomitant]

REACTIONS (3)
  - MOUTH ULCERATION [None]
  - RASH [None]
  - RASH PUSTULAR [None]
